FAERS Safety Report 23094368 (Version 9)
Quarter: 2025Q3

REPORT INFORMATION
  Report Type: Report from Study
  Country: CA (occurrence: CA)
  Receive Date: 20231023
  Receipt Date: 20250915
  Transmission Date: 20251020
  Serious: Yes (Other)
  Sender: JOHNSON AND JOHNSON
  Company Number: CA-JNJFOC-20211014862

PATIENT
  Age: 25 Year
  Sex: Female
  Weight: 59.5 kg

DRUGS (12)
  1. REMICADE [Suspect]
     Active Substance: INFLIXIMAB
     Indication: Crohn^s disease
     Route: 042
     Dates: start: 2020
  2. REMICADE [Suspect]
     Active Substance: INFLIXIMAB
     Dosage: PATIENT RECEIVED REMICADE TREATMENT ON 07-OCT-2021; BATCH NUMBER: 22L011
     Route: 041
     Dates: start: 20200330
  3. REMICADE [Suspect]
     Active Substance: INFLIXIMAB
     Route: 041
     Dates: start: 20200330
  4. REMICADE [Suspect]
     Active Substance: INFLIXIMAB
     Route: 041
     Dates: start: 2010
  5. REMICADE [Suspect]
     Active Substance: INFLIXIMAB
     Route: 041
     Dates: start: 20201027
  6. REMICADE [Suspect]
     Active Substance: INFLIXIMAB
     Route: 041
     Dates: start: 20201027
  7. REMICADE [Suspect]
     Active Substance: INFLIXIMAB
     Route: 041
     Dates: start: 20220915
  8. REMICADE [Suspect]
     Active Substance: INFLIXIMAB
     Route: 041
     Dates: start: 20250508
  9. REMICADE [Suspect]
     Active Substance: INFLIXIMAB
     Route: 041
  10. REMICADE [Suspect]
     Active Substance: INFLIXIMAB
     Dosage: DOSE MENTIONED AS 600 (MG(S)/SQ.M)
     Route: 041
  11. REMICADE [Suspect]
     Active Substance: INFLIXIMAB
     Route: 041
     Dates: start: 2011
  12. IMODIUM [Concomitant]
     Active Substance: LOPERAMIDE HYDROCHLORIDE
     Indication: Product used for unknown indication

REACTIONS (23)
  - Crohn^s disease [Not Recovered/Not Resolved]
  - Abscess limb [Recovering/Resolving]
  - Groin abscess [Recovered/Resolved]
  - Vulval abscess [Recovered/Resolved]
  - Vulval disorder [Unknown]
  - Off label use [Unknown]
  - Lichen sclerosus [Recovering/Resolving]
  - Headache [Recovered/Resolved]
  - Pain in extremity [Unknown]
  - Dysmenorrhoea [Recovered/Resolved]
  - Conjunctivitis [Recovered/Resolved]
  - Ear infection [Recovered/Resolved]
  - Influenza like illness [Recovering/Resolving]
  - Sinus pain [Recovering/Resolving]
  - Skin mass [Recovering/Resolving]
  - Anal fissure [Not Recovered/Not Resolved]
  - Stress [Unknown]
  - Oral herpes [Recovering/Resolving]
  - Dyspareunia [Unknown]
  - Anal skin tags [Unknown]
  - Therapeutic product effect decreased [Unknown]
  - Irritable bowel syndrome [Unknown]
  - Anxiety [Unknown]

NARRATIVE: CASE EVENT DATE: 20200330
